FAERS Safety Report 9626176 (Version 1)
Quarter: 2013Q4

REPORT INFORMATION
  Report Type: Report from Study
  Country: US (occurrence: US)
  Receive Date: 20131016
  Receipt Date: 20131016
  Transmission Date: 20140711
  Serious: Yes (Other)
  Sender: FDA-Public Use
  Company Number: US-US-EMD SERONO, INC.-7242788

PATIENT
  Sex: Female
  Weight: 39 kg

DRUGS (1)
  1. SEROSTIM [(SOMATROPIN (RDNA ORIGIN) FOR INJECTION)] [Suspect]
     Indication: HIV WASTING SYNDROME
     Dates: start: 20130214

REACTIONS (2)
  - Renal failure [Not Recovered/Not Resolved]
  - Pain in extremity [Unknown]
